FAERS Safety Report 18024446 (Version 1)
Quarter: 2020Q3

REPORT INFORMATION
  Report Type: Spontaneous
  Country: US (occurrence: US)
  Receive Date: 20200714
  Receipt Date: 20200714
  Transmission Date: 20201103
  Serious: No
  Sender: FDA-Public Use
  Company Number: None

PATIENT
  Age: 74 Year
  Sex: Male
  Weight: 83.25 kg

DRUGS (1)
  1. PROHANCE [Suspect]
     Active Substance: GADOTERIDOL
     Indication: MAGNETIC RESONANCE IMAGING
     Dosage: ?          OTHER FREQUENCY:IVP ? SINGLE BOLUS;?
     Route: 040

REACTIONS (1)
  - Urticaria [None]

NARRATIVE: CASE EVENT DATE: 20200714
